FAERS Safety Report 16376253 (Version 1)
Quarter: 2019Q2

REPORT INFORMATION
  Report Type: Spontaneous
  Country: FR (occurrence: FR)
  Receive Date: 20190531
  Receipt Date: 20190531
  Transmission Date: 20190711
  Serious: Yes (Other)
  Sender: FDA-Public Use
  Company Number: FR-AUROBINDO-AUR-APL-2019-006152

PATIENT

DRUGS (9)
  1. PREDNISONE TABLET [Suspect]
     Active Substance: PREDNISONE
     Indication: ORAL CANDIDIASIS
     Dosage: 20 MILLIGRAM, EVERY TWO WEEKS
     Route: 065
  2. PREDNISONE TABLET [Suspect]
     Active Substance: PREDNISONE
     Dosage: 80 MILLIGRAM
     Route: 065
  3. NIVOLUMAB [Concomitant]
     Active Substance: NIVOLUMAB
     Indication: LUNG ADENOCARCINOMA STAGE IV
     Dosage: UNK
     Route: 065
  4. PREDNISONE TABLET [Suspect]
     Active Substance: PREDNISONE
     Dosage: 30 MILLIGRAM PER DAY
     Route: 065
  5. METHYLPREDNISOLONE. [Suspect]
     Active Substance: METHYLPREDNISOLONE
     Indication: OFF LABEL USE
     Dosage: 125 MILLIGRAM
     Route: 065
  6. PREDNISONE TABLET [Suspect]
     Active Substance: PREDNISONE
     Dosage: 1 MILLIGRAM/KILOGRAM
     Route: 048
  7. METHYLPREDNISOLONE. [Suspect]
     Active Substance: METHYLPREDNISOLONE
     Indication: ORAL CANDIDIASIS
  8. NYSTATIN. [Concomitant]
     Active Substance: NYSTATIN
     Indication: DYSPHAGIA
     Dosage: UNK
     Route: 065
  9. PREDNISONE TABLET [Suspect]
     Active Substance: PREDNISONE
     Indication: OFF LABEL USE
     Dosage: 6 MILLIGRAM, ONCE A DAY
     Route: 065

REACTIONS (4)
  - Spinal compression fracture [Unknown]
  - Off label use [Unknown]
  - Product use in unapproved indication [Unknown]
  - Osteoporosis [Unknown]
